FAERS Safety Report 7734859-7 (Version None)
Quarter: 2011Q3

REPORT INFORMATION
  Report Type: 
  Country: None (occurrence: None)
  Receive Date: 20110907
  Receipt Date: 20110904
  Transmission Date: 20111222
  Serious: Yes (Hospitalization, Other)
  Sender: FDA-Public Use
  Company Number: BR-ABBOTT-11P-020-0844307-00

PATIENT
  Sex: Male
  Weight: 64 kg

DRUGS (2)
  1. METICORTEN [Concomitant]
     Indication: ANTIINFLAMMATORY THERAPY
     Route: 048
  2. HUMIRA [Suspect]
     Indication: RHEUMATOID ARTHRITIS
     Route: 058
     Dates: start: 20110516

REACTIONS (3)
  - INCISION SITE COMPLICATION [None]
  - APPENDICITIS PERFORATED [None]
  - APPENDICITIS [None]
